FAERS Safety Report 14080532 (Version 1)
Quarter: 2017Q4

REPORT INFORMATION
  Report Type: Spontaneous
  Country: FR (occurrence: FR)
  Receive Date: 20171012
  Receipt Date: 20171012
  Transmission Date: 20180321
  Serious: Yes (Other)
  Sender: FDA-Public Use
  Company Number: FR-MERCK KGAA-2029821

PATIENT
  Age: 66 Year
  Sex: Female

DRUGS (7)
  1. DANTRIUM [Concomitant]
     Active Substance: DANTROLENE SODIUM
  2. IMUREL [Concomitant]
     Active Substance: AZATHIOPRINE SODIUM
  3. ZANIDIP [Concomitant]
     Active Substance: LERCANIDIPINE HYDROCHLORIDE
  4. TAREG [Concomitant]
     Active Substance: VALSARTAN
  5. NOVOTHYROX [Suspect]
     Active Substance: LEVOTHYROXINE SODIUM
     Indication: PRODUCT USED FOR UNKNOWN INDICATION
     Dates: start: 201704
  6. FURADANTINE [Concomitant]
     Active Substance: NITROFURANTOIN
  7. TENORMIN [Concomitant]
     Active Substance: ATENOLOL

REACTIONS (3)
  - Visual impairment [Not Recovered/Not Resolved]
  - Pruritus [Not Recovered/Not Resolved]
  - Herpes zoster [Unknown]

NARRATIVE: CASE EVENT DATE: 2017
